FAERS Safety Report 4766011-1 (Version None)
Quarter: 2005Q3

REPORT INFORMATION
  Report Type: 
  Country: None (occurrence: None)
  Receive Date: 20050912
  Receipt Date: 20041203
  Transmission Date: 20060218
  Serious: Yes (Other)
  Sender: FDA-Public Use
  Company Number: GB-GLAXOSMITHKLINE-B0361177A

PATIENT
  Sex: Male

DRUGS (2)
  1. PAROXETINE HYDROCHLORIDE [Suspect]
     Indication: AGITATION
     Route: 065
     Dates: start: 20020501, end: 20020601
  2. DIAZEPAM [Concomitant]
     Route: 065

REACTIONS (4)
  - DISINHIBITION [None]
  - ILL-DEFINED DISORDER [None]
  - INTENTIONAL SELF-INJURY [None]
  - IRRITABILITY [None]
